FAERS Safety Report 4932638-7 (Version None)
Quarter: 2006Q1

REPORT INFORMATION
  Report Type: 
  Country: None (occurrence: None)
  Receive Date: 20060301
  Receipt Date: 20060221
  Transmission Date: 20060701
  Serious: Yes (Other)
  Sender: FDA-Public Use
  Company Number: 805#1#2006-00008

PATIENT
  Age: 76 Year
  Sex: Female

DRUGS (10)
  1. ALPROSTADIL [Suspect]
     Indication: ARTERIOSCLEROSIS OBLITERANS
     Dosage: 1.120 MCG (60 MCG 2 IN 1 DAY(S)) INTRAVENOUS DRIP
     Route: 041
     Dates: start: 20060126, end: 20060209
  2. ALPROSTADIL [Suspect]
     Indication: HEPATIC FUNCTION ABNORMAL
     Dosage: 1.120 MCG (60 MCG 2 IN 1 DAY(S)) INTRAVENOUS DRIP
     Route: 041
     Dates: start: 20060126, end: 20060209
  3. FUROSEMIDE [Suspect]
     Dosage: 10 MG ORAL
     Route: 048
     Dates: start: 20060207, end: 20060215
  4. ASCORBIC ACID [Concomitant]
  5. ECABET SODIUM (ECABET MONOSODIUM) [Concomitant]
  6. DILTIAZEM HYDROCHLORIDE (DILTIAZEM) [Concomitant]
  7. VOGLIBOSE (VOGLIBOSE) [Concomitant]
  8. AMLODIPINE BESYLATE [Concomitant]
  9. SARPOGRELATE HYDROCHLORIDE           (SARPOGRELATE HYDROCHLORIDE) [Concomitant]
  10. BERAPROST SODIUM            (BERAPROST SODIUM) [Concomitant]

REACTIONS (3)
  - ALANINE AMINOTRANSFERASE INCREASED [None]
  - ASPARTATE AMINOTRANSFERASE INCREASED [None]
  - HEPATIC FUNCTION ABNORMAL [None]
